FAERS Safety Report 24340098 (Version 2)
Quarter: 2024Q3

REPORT INFORMATION
  Report Type: Spontaneous
  Country: US (occurrence: US)
  Receive Date: 20240919
  Receipt Date: 20240927
  Transmission Date: 20241017
  Serious: Yes (Other)
  Sender: PFIZER
  Company Number: US-PFIZER INC-202400256371

PATIENT
  Age: 47 Year
  Sex: Female
  Weight: 79.38 kg

DRUGS (4)
  1. PAXLOVID [Suspect]
     Active Substance: NIRMATRELVIR\RITONAVIR
     Indication: COVID-19 treatment
     Dosage: [NIRMATRELVIR 300 MG]/[RITONAVIR 100 MG]; 2X/DAY
     Route: 048
     Dates: start: 20240913, end: 20240913
  2. ESTROGENS [Concomitant]
     Active Substance: ESTROGENS
     Indication: Menopause
     Dosage: UNK
  3. ESTRADIOL [Concomitant]
     Active Substance: ESTRADIOL
     Indication: Menopause
     Dosage: IT^S 0.10 MILLIGRAMS PACK, TWICE A WEEK
  4. PROGESTERONE [Concomitant]
     Active Substance: PROGESTERONE
     Indication: Menopause
     Dosage: 100 MG

REACTIONS (8)
  - Hypertension [Unknown]
  - Chest pain [Recovering/Resolving]
  - Abdominal discomfort [Recovering/Resolving]
  - Self-induced vomiting [Unknown]
  - Migraine [Unknown]
  - Malaise [Unknown]
  - Eating disorder [Unknown]
  - Middle insomnia [Unknown]

NARRATIVE: CASE EVENT DATE: 20240901
